FAERS Safety Report 21269560 (Version 1)
Quarter: 2022Q3

REPORT INFORMATION
  Report Type: Spontaneous
  Country: GB (occurrence: GB)
  Receive Date: 20220830
  Receipt Date: 20220830
  Transmission Date: 20221026
  Serious: Yes (Life-Threatening, Hospitalization, Other)
  Sender: FDA-Public Use
  Company Number: None

PATIENT
  Age: 74 Year
  Sex: Female
  Weight: 77 kg

DRUGS (8)
  1. CAPECITABINE [Suspect]
     Active Substance: CAPECITABINE
     Indication: Breast cancer stage III
     Dosage: 1800 ONCE DAILY
     Dates: start: 20220816, end: 20220821
  2. AMLODIPINE [Concomitant]
     Active Substance: AMLODIPINE BESYLATE
  3. DOMPERIDONE [Concomitant]
     Active Substance: DOMPERIDONE
  4. ETORICOXIB [Concomitant]
     Active Substance: ETORICOXIB
  5. FYBOGEL [Concomitant]
     Active Substance: HERBALS\PLANTAGO OVATA SEED
  6. LANSOPRAZOLE [Concomitant]
     Active Substance: LANSOPRAZOLE
  7. LOPERAMIDE [Concomitant]
     Active Substance: LOPERAMIDE
  8. PREDNISOLONE [Concomitant]
     Active Substance: PREDNISOLONE

REACTIONS (1)
  - Acute coronary syndrome [Not Recovered/Not Resolved]

NARRATIVE: CASE EVENT DATE: 20220816
